FAERS Safety Report 9776818 (Version 1)
Quarter: 2013Q4

REPORT INFORMATION
  Report Type: Report from Study
  Country: US (occurrence: US)
  Receive Date: 20131220
  Receipt Date: 20131220
  Transmission Date: 20140711
  Serious: Yes (Death)
  Sender: FDA-Public Use
  Company Number: US-ROCHE-1322109

PATIENT
  Sex: Male

DRUGS (10)
  1. AVASTIN [Suspect]
     Indication: LUNG NEOPLASM MALIGNANT
     Route: 042
     Dates: start: 20120224
  2. AVASTIN [Suspect]
     Route: 042
     Dates: start: 20120730
  3. AVASTIN [Suspect]
     Dosage: START DATE 27/AUG/2012
     Route: 065
  4. ALOXI [Concomitant]
     Route: 065
  5. BENADRYL (UNITED STATES) [Concomitant]
     Route: 065
  6. DECADRON [Concomitant]
     Route: 065
  7. NAVELBINE [Concomitant]
     Route: 065
  8. NAVELBINE [Concomitant]
     Route: 065
     Dates: start: 20120730
  9. NAVELBINE [Concomitant]
     Route: 065
     Dates: start: 20120924
  10. NEULASTA [Concomitant]
     Route: 065

REACTIONS (5)
  - Death [Fatal]
  - Pain [Unknown]
  - Pain [Unknown]
  - Off label use [Unknown]
  - Fatigue [Unknown]
